FAERS Safety Report 9815293 (Version 1)
Quarter: 2014Q1

REPORT INFORMATION
  Report Type: Spontaneous
  Country: ES (occurrence: ES)
  Receive Date: 20140114
  Receipt Date: 20140114
  Transmission Date: 20141002
  Serious: Yes (Other)
  Sender: FDA-Public Use
  Company Number: ES-ORION CORPORATION ORION PHARMA-ENT 2014-0009

PATIENT
  Age: 69 Year
  Sex: Male

DRUGS (6)
  1. ENTACAPONE [Suspect]
     Indication: PARKINSON^S DISEASE
     Route: 048
  2. RASAGILINE [Suspect]
     Indication: PARKINSON^S DISEASE
     Route: 048
  3. ROTIGOTINE [Suspect]
     Indication: PARKINSON^S DISEASE
     Route: 048
  4. L-DOPA [Suspect]
     Indication: PARKINSON^S DISEASE
     Route: 048
  5. AMANTADINE [Concomitant]
     Indication: PARKINSON^S DISEASE
     Route: 065
  6. CLONAZEPAM [Concomitant]
     Indication: PARKINSON^S DISEASE
     Route: 065

REACTIONS (6)
  - Pathological gambling [Recovered/Resolved]
  - Compulsive shopping [Recovered/Resolved]
  - Dopamine dysregulation syndrome [Recovered/Resolved]
  - Stereotypy [Recovering/Resolving]
  - On and off phenomenon [Recovered/Resolved]
  - Dyskinesia [Recovering/Resolving]
